FAERS Safety Report 13668960 (Version 1)
Quarter: 2017Q2

REPORT INFORMATION
  Report Type: Spontaneous
  Country: FR (occurrence: FR)
  Receive Date: 20170620
  Receipt Date: 20170620
  Transmission Date: 20170830
  Serious: Yes (Hospitalization, Other)
  Sender: FDA-Public Use
  Company Number: FR-PFIZER INC-2017261682

PATIENT
  Age: 41 Year
  Sex: Male

DRUGS (8)
  1. NEFOPAM HYDROCHLORIDE [Suspect]
     Active Substance: NEFOPAM HYDROCHLORIDE
     Indication: GENERAL ANAESTHESIA
     Dosage: 40 MG, SINGLE
     Route: 042
     Dates: start: 20170524, end: 20170524
  2. SUFENTANIL MYLAN [Suspect]
     Active Substance: SUFENTANIL
     Indication: GENERAL ANAESTHESIA
     Dosage: 10 UG, SINGLE
     Route: 042
     Dates: start: 20170524, end: 20170524
  3. MORPHINE [Suspect]
     Active Substance: MORPHINE
     Indication: GENERAL ANAESTHESIA
     Dosage: 5 MG, SINGLE
     Route: 042
     Dates: start: 20170524, end: 20170524
  4. KETOPROFENE MEDAC [Suspect]
     Active Substance: KETOPROFEN
     Indication: GENERAL ANAESTHESIA
     Dosage: 100 MG, SINGLE
     Route: 042
     Dates: start: 20170524, end: 20170524
  5. TOPALGIC (FRANCE) [Suspect]
     Active Substance: TRAMADOL
     Indication: GENERAL ANAESTHESIA
     Dosage: 100 MG, SINGLE
     Route: 042
     Dates: start: 20170524, end: 20170524
  6. PERFALGAN [Suspect]
     Active Substance: ACETAMINOPHEN
     Indication: GENERAL ANAESTHESIA
     Dosage: 1000 MG, SINGLE
     Route: 042
     Dates: start: 20170524, end: 20170524
  7. DROPERIDOL AGUETTANT [Suspect]
     Active Substance: DROPERIDOL
     Indication: GENERAL ANAESTHESIA
     Dosage: 1.25 MG, SINGLE
     Route: 042
     Dates: start: 20170524, end: 20170524
  8. ATRACURIUM BESILATE [Suspect]
     Active Substance: ATRACURIUM BESYLATE
     Indication: GENERAL ANAESTHESIA
     Dosage: 20 MG, SINGLE
     Route: 042
     Dates: start: 20170524, end: 20170524

REACTIONS (2)
  - Dehydration [Recovered/Resolved with Sequelae]
  - Pancreatitis acute [Recovered/Resolved with Sequelae]

NARRATIVE: CASE EVENT DATE: 20170524
